FAERS Safety Report 23113154 (Version 1)
Quarter: 2023Q4

REPORT INFORMATION
  Report Type: Spontaneous
  Country: AU (occurrence: None)
  Receive Date: 20231027
  Receipt Date: 20231027
  Transmission Date: 20240110
  Serious: Yes (Other)
  Sender: FDA-Public Use
  Company Number: AU-ROCHE-3444110

PATIENT
  Age: 43 Year
  Sex: Male

DRUGS (13)
  1. TECENTRIQ [Suspect]
     Active Substance: ATEZOLIZUMAB
     Indication: Colorectal cancer metastatic
     Route: 041
     Dates: start: 20230809
  2. DILTIAZEM [Concomitant]
     Active Substance: DILTIAZEM
  3. OXYCODONE HYDROCHLORIDE [Concomitant]
     Active Substance: OXYCODONE HYDROCHLORIDE
  4. FINASTERIDE [Concomitant]
     Active Substance: FINASTERIDE
  5. HEPARIN SODIUM [Concomitant]
     Active Substance: HEPARIN SODIUM
  6. MAXOLON [Concomitant]
     Active Substance: METOCLOPRAMIDE HYDROCHLORIDE
  7. ONDANSETRON [Concomitant]
     Active Substance: ONDANSETRON
  8. PARACETAMOL OSTEO [Concomitant]
  9. RIVAROXABAN [Concomitant]
     Active Substance: RIVAROXABAN
  10. SODIUM CHLORIDE [Concomitant]
     Active Substance: SODIUM CHLORIDE
  11. SYMBICORT [Concomitant]
     Active Substance: BUDESONIDE\FORMOTEROL FUMARATE DIHYDRATE
  12. NALOXONE HYDROCHLORIDE\OXYCODONE HYDROCHLORIDE [Concomitant]
     Active Substance: NALOXONE HYDROCHLORIDE\OXYCODONE HYDROCHLORIDE
  13. NAPROXEN [Concomitant]
     Active Substance: NAPROXEN

REACTIONS (2)
  - Encephalopathy [Unknown]
  - Fatigue [Not Recovered/Not Resolved]

NARRATIVE: CASE EVENT DATE: 20230821
